FAERS Safety Report 6679992-6 (Version None)
Quarter: 2010Q2

REPORT INFORMATION
  Report Type: 
  Country: None (occurrence: None)
  Receive Date: 20100413
  Receipt Date: 20100401
  Transmission Date: 20101027
  Serious: Yes (Hospitalization, Other)
  Sender: FDA-Public Use
  Company Number: ES-ELI_LILLY_AND_COMPANY-ES201004000602

PATIENT
  Sex: Male
  Weight: 100 kg

DRUGS (3)
  1. FORTEO [Suspect]
     Indication: FRACTURE TREATMENT
     Dosage: 20 UG, DAILY (1/D)
     Route: 058
     Dates: start: 20080326, end: 20100307
  2. NOLOTIL [Concomitant]
     Indication: PAIN
     Dosage: UNK, UNKNOWN
     Route: 065
  3. IBUPROFEN [Concomitant]
     Indication: PAIN
     Dosage: UNK, UNKNOWN
     Route: 065

REACTIONS (3)
  - JOINT ARTHROPLASTY [None]
  - OFF LABEL USE [None]
  - TRACTION [None]
